FAERS Safety Report 8910205 (Version 3)
Quarter: 2013Q3

REPORT INFORMATION
  Report Type: Spontaneous
  Country: US (occurrence: US)
  Receive Date: 20121115
  Receipt Date: 20130920
  Transmission Date: 20140515
  Serious: Yes (Hospitalization)
  Sender: FDA-Public Use
  Company Number: US-BIOGENIDEC-2012BI050997

PATIENT
  Age: 46 Year
  Sex: Female

DRUGS (2)
  1. AVONEX [Suspect]
     Indication: MULTIPLE SCLEROSIS
     Route: 030
     Dates: start: 201101
  2. AVONEX [Suspect]
     Indication: MULTIPLE SCLEROSIS
     Route: 030
     Dates: start: 20110804, end: 201306

REACTIONS (12)
  - Dysarthria [Recovered/Resolved]
  - Fall [Recovered/Resolved]
  - Muscular weakness [Not Recovered/Not Resolved]
  - Multiple sclerosis relapse [Not Recovered/Not Resolved]
  - Hemiparesis [Not Recovered/Not Resolved]
  - Anxiety [Recovered/Resolved]
  - Migraine [Recovered/Resolved]
  - Influenza like illness [Unknown]
  - Asthenia [Unknown]
  - Thrombosis [Recovered/Resolved]
  - Cough [Not Recovered/Not Resolved]
  - Pneumonia [Unknown]
